FAERS Safety Report 8546768-4 (Version None)
Quarter: 2012Q3

REPORT INFORMATION
  Report Type: 
  Country: None (occurrence: None)
  Receive Date: 20120727
  Receipt Date: 20120201
  Transmission Date: 20120928
  Serious: No
  Sender: FDA-Public Use
  Company Number: US-ASTRAZENECA-2012SE07514

PATIENT
  Age: 27 Year
  Sex: Female

DRUGS (3)
  1. SEROQUEL XR [Suspect]
     Indication: MANIA
     Route: 048
  2. ADEROL [Concomitant]
  3. SEROQUEL XR [Suspect]
     Route: 048

REACTIONS (3)
  - ADVERSE DRUG REACTION [None]
  - FEELING ABNORMAL [None]
  - STUPOR [None]
